FAERS Safety Report 24631612 (Version 1)
Quarter: 2024Q4

REPORT INFORMATION
  Report Type: Spontaneous
  Country: US (occurrence: None)
  Receive Date: 20241118
  Receipt Date: 20241118
  Transmission Date: 20250115
  Serious: No
  Sender: Public
  Company Number: None

PATIENT
  Age: 41 Year
  Sex: Female
  Weight: 76.05 kg

DRUGS (12)
  1. FETZIMA [Suspect]
     Active Substance: LEVOMILNACIPRAN HYDROCHLORIDE
     Indication: Major depression
     Dosage: 2 CAPSULES ORAL?
     Route: 048
     Dates: start: 20241002
  2. GABAPENTIN [Concomitant]
     Active Substance: GABAPENTIN
  3. XANAX [Concomitant]
     Active Substance: ALPRAZOLAM
  4. CLONIDINE [Concomitant]
     Active Substance: CLONIDINE
  5. PROZOSIN [Concomitant]
  6. zofraon (prn) [Concomitant]
  7. ADDERALL [Concomitant]
     Active Substance: AMPHETAMINE ASPARTATE\AMPHETAMINE SULFATE\DEXTROAMPHETAMINE SACCHARATE\DEXTROAMPHETAMINE SULFATE
  8. FETZIMA [Concomitant]
     Active Substance: LEVOMILNACIPRAN HYDROCHLORIDE
  9. ALLEGRA [Concomitant]
     Active Substance: FEXOFENADINE HYDROCHLORIDE
  10. ibprofin [Concomitant]
  11. tylonol [Concomitant]
  12. FLONASE [Concomitant]
     Active Substance: FLUTICASONE PROPIONATE

REACTIONS (12)
  - Affective disorder [None]
  - Aggression [None]
  - Anger [None]
  - Anxiety [None]
  - Irritability [None]
  - Feeling abnormal [None]
  - Feeling cold [None]
  - Temperature regulation disorder [None]
  - Aggression [None]
  - Mood altered [None]
  - Crying [None]
  - Nonspecific reaction [None]

NARRATIVE: CASE EVENT DATE: 20241112
